FAERS Safety Report 9419595 (Version 1)
Quarter: 2013Q3

REPORT INFORMATION
  Report Type: Spontaneous
  Country: US (occurrence: None)
  Receive Date: 20130723
  Receipt Date: 20130723
  Transmission Date: 20140515
  Serious: Yes (Hospitalization, Other)
  Sender: FDA-Public Use
  Company Number: AUR-APL-2013-06086

PATIENT
  Age: 57 Year
  Sex: Female

DRUGS (13)
  1. FLUOXETINE [Suspect]
     Indication: PRODUCT USED FOR UNKNOWN INDICATION
  2. MILNACIPRAN [Suspect]
     Indication: FIBROMYALGIA
     Dosage: 100 MG (50 MG, 2 IN 1 D), UNKNOWN
  3. TRAMADOL [Suspect]
     Indication: PRODUCT USED FOR UNKNOWN INDICATION
  4. DOXEPIN [Suspect]
     Indication: PRODUCT USED FOR UNKNOWN INDICATION
  5. ALPRAZOLAM (ALPRAZOLAM) [Concomitant]
  6. ZOLPIDEM (ZOLPIDEM) [Concomitant]
  7. ZOLEDRONIC ACID (ZOLEDRONIC ACID) [Concomitant]
  8. ANASTROZOLE (ANASTROZOLE) [Concomitant]
  9. RANITIDINE (RANITIDINE) [Concomitant]
  10. LEVOCETIRIZINE (LEVOCETIRIZINE) [Concomitant]
  11. DOXAZOSIN (DOXAZOSIN) [Concomitant]
  12. VITAMIN D (ERGOCALCIFEROL) [Concomitant]
  13. FERROUS GLUCONATE (FERROUS GLUCONATE) [Concomitant]

REACTIONS (11)
  - Rash erythematous [None]
  - Rash maculo-papular [None]
  - Diarrhoea [None]
  - Nausea [None]
  - Restlessness [None]
  - Dizziness [None]
  - Myalgia [None]
  - Blood pressure increased [None]
  - Heart rate increased [None]
  - Respiratory rate increased [None]
  - Blood glucose increased [None]
